FAERS Safety Report 8223002-6 (Version None)
Quarter: 2012Q1

REPORT INFORMATION
  Report Type: 
  Country: None (occurrence: None)
  Receive Date: 20120320
  Receipt Date: 20120312
  Transmission Date: 20120608
  Serious: Yes (Other)
  Sender: FDA-Public Use
  Company Number: US-ASTRAZENECA-2011SE41567

PATIENT
  Age: 46 Year
  Sex: Male
  Weight: 81.6 kg

DRUGS (10)
  1. PRILOSEC OTC [Concomitant]
  2. RANITIDINE [Concomitant]
     Dates: start: 20050101
  3. VITAMIN D [Concomitant]
     Indication: BONE DISORDER
     Dosage: 5000 UNITS ONCE A MONTH
  4. METHOCARBAMOL [Concomitant]
     Indication: MUSCLE SPASMS
  5. NEXIUM [Suspect]
     Route: 048
     Dates: start: 20080101, end: 20100101
  6. CYCLEBENZAPRINE [Concomitant]
     Indication: MUSCLE SPASMS
  7. HYDROCODONE [Concomitant]
     Indication: PAIN IN EXTREMITY
  8. NEXIUM [Suspect]
     Indication: DYSPEPSIA
     Dosage: DAILY
     Route: 048
  9. HYDROCODONE [Concomitant]
     Indication: BACK PAIN
  10. ALKA SELTZER [Concomitant]
     Dosage: 2 TABLETS TWICE EVERY OTHER DAY
     Dates: start: 20000101, end: 20030101

REACTIONS (2)
  - SPINAL FRACTURE [None]
  - OSTEOPOROSIS [None]
